FAERS Safety Report 9846204 (Version 1)
Quarter: 2013Q4

REPORT INFORMATION
  Report Type: Spontaneous
  Country: US (occurrence: None)
  Receive Date: 20131223
  Receipt Date: 20131223
  Transmission Date: 20140711
  Serious: Yes (Other)
  Sender: FDA-Public Use
  Company Number: CABO-13003584

PATIENT
  Age: 54 Year
  Sex: Male
  Weight: 79.6 kg

DRUGS (1)
  1. COMETRIQ (CABOZANTINIB) CAPSULE [Suspect]
     Indication: NEOPLASM MALIGNANT
     Route: 048
     Dates: start: 20130825, end: 20131017

REACTIONS (2)
  - Malignant neoplasm progression [None]
  - Off label use [None]
